FAERS Safety Report 12879758 (Version 1)
Quarter: 2016Q4

REPORT INFORMATION
  Report Type: Spontaneous
  Country: US (occurrence: US)
  Receive Date: 20161025
  Receipt Date: 20161025
  Transmission Date: 20170207
  Serious: No
  Sender: FDA-Public Use
  Company Number: US-BAYER-2016-203672

PATIENT
  Age: 86 Year
  Sex: Male
  Weight: 77.98 kg

DRUGS (5)
  1. BAYER LOW DOSE [Concomitant]
     Active Substance: ASPIRIN
     Indication: PROPHYLAXIS
     Dosage: 1 DF, UNK
     Route: 048
  2. PROTONIX [Concomitant]
     Active Substance: PANTOPRAZOLE SODIUM
  3. THYROXINE [Concomitant]
     Active Substance: LEVOTHYROXINE
  4. DULCOLAX (DOCUSATE SODIUM) [Concomitant]
     Active Substance: DOCUSATE SODIUM
  5. MIRALAX [Suspect]
     Active Substance: POLYETHYLENE GLYCOL 3350
     Indication: GASTROINTESTINAL DISORDER
     Dosage: 2 TEASPOON
     Route: 048
     Dates: end: 20161019

REACTIONS (3)
  - Product use issue [Unknown]
  - Product use issue [None]
  - Constipation [Recovered/Resolved]

NARRATIVE: CASE EVENT DATE: 20161020
